FAERS Safety Report 26197930 (Version 1)
Quarter: 2025Q4

REPORT INFORMATION
  Report Type: Spontaneous
  Country: US (occurrence: US)
  Receive Date: 20251224
  Receipt Date: 20251224
  Transmission Date: 20260118
  Serious: Yes (Hospitalization, Other)
  Sender: ALEMBIC
  Company Number: US-ALEMBIC PHARMACUETICALS LIMITED-2025SCAL001825

PATIENT

DRUGS (1)
  1. METHOTREXATE [Suspect]
     Active Substance: METHOTREXATE
     Indication: Rheumatoid arthritis
     Dosage: UNK
     Route: 065

REACTIONS (14)
  - Histoplasmosis disseminated [Recovered/Resolved]
  - Haemolysis [Recovered/Resolved]
  - Malaise [Recovered/Resolved]
  - Jaundice [Recovered/Resolved]
  - Hypertransaminasaemia [Recovered/Resolved]
  - Bicytopenia [Recovered/Resolved]
  - Pancytopenia [Recovered/Resolved]
  - Hepatosplenomegaly [Recovered/Resolved]
  - Serum ferritin increased [Recovered/Resolved]
  - Pyrexia [Recovered/Resolved]
  - Hypertriglyceridaemia [Recovered/Resolved]
  - Interleukin level increased [Recovered/Resolved]
  - Hyperbilirubinaemia [Recovered/Resolved]
  - Cough [Recovered/Resolved]
